FAERS Safety Report 8486716-9 (Version None)
Quarter: 2012Q3

REPORT INFORMATION
  Report Type: 
  Country: None (occurrence: None)
  Receive Date: 20120704
  Receipt Date: 20120622
  Transmission Date: 20120928
  Serious: Yes (Other)
  Sender: FDA-Public Use
  Company Number: DE-ACCORD-013888

PATIENT
  Age: 62 Year
  Sex: Female

DRUGS (14)
  1. MYCOPHENOLATE MOFETIL [Suspect]
  2. TRAMADOL HCL [Concomitant]
  3. NITRENDIPINE [Concomitant]
  4. AZATHIOPRINE [Concomitant]
  5. BETAMETHASONE VALERATE [Concomitant]
     Dosage: 0.1% CREAM
     Route: 061
  6. DEXAMETHASONE SODIUM PHOSPHATE [Concomitant]
     Route: 042
  7. METHYLPREDNISOLONE [Concomitant]
     Route: 048
  8. CORTICOSTEROIDS [Concomitant]
     Route: 061
  9. HYDROCHLORTHIAZID [Concomitant]
  10. DAPSONE [Concomitant]
  11. CARBAMAZEPINE [Suspect]
  12. PREDNISOLONE [Concomitant]
     Route: 048
  13. ASPIRIN [Concomitant]
  14. IMMUNE GLOBULIN NOS [Concomitant]
     Dosage: 2 GM/KG, 3 CYCLES WERE ADMINISTERED IN 4-WEEK INTERVALS
     Route: 042

REACTIONS (3)
  - OFF LABEL USE [None]
  - GRANULOCYTOPENIA [None]
  - LYMPHOPENIA [None]
